FAERS Safety Report 4860920-0 (Version None)
Quarter: 2005Q4

REPORT INFORMATION
  Report Type: 
  Country: None (occurrence: None)
  Receive Date: 20051220
  Receipt Date: 20051025
  Transmission Date: 20060501
  Serious: Yes (Other)
  Sender: FDA-Public Use
  Company Number: PHBS2005NO15836

PATIENT
  Age: 58 Year
  Sex: Female

DRUGS (2)
  1. ZOMETA [Suspect]
     Indication: METASTASES TO BONE
     Dosage: 4 MG, TOTALLY 22  TIMES
     Dates: start: 20031101
  2. NOLVADEX [Concomitant]
     Route: 065
     Dates: start: 19940101

REACTIONS (8)
  - BONE SWELLING [None]
  - ENDODONTIC PROCEDURE [None]
  - FISTULA [None]
  - IMPAIRED HEALING [None]
  - JAW OPERATION [None]
  - ORAL MUCOSAL DISORDER [None]
  - OSTEONECROSIS [None]
  - TOOTHACHE [None]
